FAERS Safety Report 8969744 (Version 1)
Quarter: 2012Q4

REPORT INFORMATION
  Report Type: 
  Country: US (occurrence: US)
  Receive Date: 20121218
  Receipt Date: 20121218
  Transmission Date: 20130627
  Serious: No
  Sender: FDA-Public Use
  Company Number: US-BRISTOL-MYERS SQUIBB COMPANY-16236242

PATIENT
  Age: 14 Year
  Sex: Female

DRUGS (1)
  1. ABILIFY [Suspect]
     Dosage: started at 1mg and increased to 2mg.

REACTIONS (3)
  - Dizziness [Unknown]
  - Vision blurred [Unknown]
  - Blood iron decreased [Unknown]
